FAERS Safety Report 7156418-X (Version None)
Quarter: 2010Q4

REPORT INFORMATION
  Report Type: 
  Country: None (occurrence: None)
  Receive Date: 20101214
  Receipt Date: 20101207
  Transmission Date: 20110411
  Serious: Yes (Other)
  Sender: FDA-Public Use
  Company Number: GB-ROCHE-746929

PATIENT
  Sex: Female

DRUGS (1)
  1. XENICAL [Suspect]
     Route: 065

REACTIONS (1)
  - CHOLECYSTECTOMY [None]
